FAERS Safety Report 6220062-9 (Version None)
Quarter: 2009Q2

REPORT INFORMATION
  Report Type: 
  Country: None (occurrence: None)
  Receive Date: 20090609
  Receipt Date: 20090528
  Transmission Date: 20091009
  Serious: Yes (Other)
  Sender: FDA-Public Use
  Company Number: PHHY2009JP10276

PATIENT
  Sex: Female

DRUGS (6)
  1. DIOVAN T30230+TAB+HY [Suspect]
     Dosage: 40 MG DAILY
     Route: 048
     Dates: start: 20080204, end: 20090118
  2. DIOVAN T30230+TAB+HY [Suspect]
     Dosage: 80 MG, UNK
     Route: 048
     Dates: start: 20090119, end: 20090308
  3. NIVADIL [Concomitant]
     Dosage: 8 MG/DAY
     Route: 048
     Dates: start: 20070312
  4. AMARYL [Concomitant]
     Dosage: 10 MG/DAY
     Route: 048
  5. ASPIRIN [Concomitant]
     Dosage: 100 MG/DAY
     Route: 048
     Dates: start: 20080609
  6. DEPAKENE [Concomitant]
     Route: 048

REACTIONS (6)
  - CARDIAC FAILURE CONGESTIVE [None]
  - DYSURIA [None]
  - GAMMA-GLUTAMYLTRANSFERASE INCREASED [None]
  - MALAISE [None]
  - OEDEMA PERIPHERAL [None]
  - URINE OUTPUT DECREASED [None]
